FAERS Safety Report 19972669 (Version 1)
Quarter: 2021Q4

REPORT INFORMATION
  Report Type: Spontaneous
  Country: US (occurrence: US)
  Receive Date: 20211019
  Receipt Date: 20211019
  Transmission Date: 20220303
  Serious: Yes (Hospitalization)
  Sender: FDA-Public Use
  Company Number: None

PATIENT
  Age: 76 Year
  Sex: Male

DRUGS (11)
  1. REGEN-COV [Suspect]
     Active Substance: CASIRIVIMAB\IMDEVIMAB
     Indication: COVID-19
     Dosage: ?          OTHER FREQUENCY:ONCE;
     Route: 042
     Dates: start: 20211017, end: 20211017
  2. Apixaban 5 mg BID [Concomitant]
  3. Atorvastatin 40 mg QD [Concomitant]
  4. Dapagliflozin 5 mg QD [Concomitant]
  5. Dulaglutide 1.5 mg Weekly [Concomitant]
  6. Levothyroxine 75 mcg QOD [Concomitant]
  7. Levothyroxine 150 mg QOD [Concomitant]
  8. Lisinopril 40 mg QD [Concomitant]
  9. Metformin 1000 mg QD [Concomitant]
  10. Terbinafine 250 mg QD [Concomitant]
  11. Trazodone 50 mg QHS [Concomitant]

REACTIONS (3)
  - Urticaria [None]
  - Hypotension [None]
  - Anaphylactic reaction [None]

NARRATIVE: CASE EVENT DATE: 20211017
